FAERS Safety Report 15419627 (Version 1)
Quarter: 2018Q3

REPORT INFORMATION
  Report Type: Spontaneous
  Country: US (occurrence: US)
  Receive Date: 20180924
  Receipt Date: 20180924
  Transmission Date: 20181010
  Serious: No
  Sender: FDA-Public Use
  Company Number: US-009507513-1809USA004066

PATIENT
  Age: 22 Year
  Sex: Female
  Weight: 56 kg

DRUGS (1)
  1. NEXPLANON [Suspect]
     Active Substance: ETONOGESTREL
     Indication: CONTRACEPTION
     Dosage: 1 IMPLANT, FOR 4 YEARS
     Route: 059
     Dates: start: 20180515

REACTIONS (2)
  - Circumstance or information capable of leading to medication error [Unknown]
  - Menorrhagia [Not Recovered/Not Resolved]

NARRATIVE: CASE EVENT DATE: 201808
